FAERS Safety Report 6672376-6 (Version None)
Quarter: 2010Q2

REPORT INFORMATION
  Report Type: 
  Country: None (occurrence: None)
  Receive Date: 20100408
  Receipt Date: 20100330
  Transmission Date: 20101027
  Serious: Yes (Hospitalization)
  Sender: FDA-Public Use
  Company Number: US-JNJFOC-20100400175

PATIENT
  Sex: Female

DRUGS (3)
  1. HALDOL [Suspect]
     Indication: DRUG USE FOR UNKNOWN INDICATION
     Route: 065
  2. ATIVAN [Concomitant]
     Route: 065
  3. CARDIZEM [Concomitant]
     Indication: BLOOD PRESSURE
     Route: 065

REACTIONS (5)
  - DYSCALCULIA [None]
  - HEADACHE [None]
  - HYPERTENSION [None]
  - PALPITATIONS [None]
  - READING DISORDER [None]
